FAERS Safety Report 22001287 (Version 3)
Quarter: 2023Q1

REPORT INFORMATION
  Report Type: Spontaneous
  Country: PL (occurrence: None)
  Receive Date: 20230216
  Receipt Date: 20230303
  Transmission Date: 20230417
  Serious: Yes (Hospitalization, Other)
  Sender: FDA-Public Use
  Company Number: 2023A038536

PATIENT
  Age: 64 Year
  Sex: Female

DRUGS (6)
  1. METOPROLOL [Interacting]
     Active Substance: METOPROLOL
     Indication: Atrial fibrillation
  2. OMEPRAZOLE [Interacting]
     Active Substance: OMEPRAZOLE
     Indication: Atrial fibrillation
     Route: 048
  3. PAROXETINE [Interacting]
     Active Substance: PAROXETINE
     Indication: Atrial fibrillation
  4. DOXYLAMINE [Interacting]
     Active Substance: DOXYLAMINE
     Indication: Atrial fibrillation
  5. PROPAFENONE [Interacting]
     Active Substance: PROPAFENONE
     Indication: Atrial fibrillation
  6. RIVAROXABAN [Interacting]
     Active Substance: RIVAROXABAN
     Indication: Atrial fibrillation

REACTIONS (4)
  - Drug interaction [Recovered/Resolved]
  - Rhabdomyolysis [Unknown]
  - Acute kidney injury [Unknown]
  - Somnolence [Unknown]
